FAERS Safety Report 21155023 (Version 2)
Quarter: 2023Q2

REPORT INFORMATION
  Report Type: Report from Study
  Country: CA (occurrence: None)
  Receive Date: 20220801
  Receipt Date: 20230620
  Transmission Date: 20230722
  Serious: Yes (Other)
  Sender: FDA-Public Use
  Company Number: CA-PFIZER INC-202201011009

PATIENT
  Age: 63 Year
  Sex: Female

DRUGS (21)
  1. METHOTREXATE [Suspect]
     Active Substance: METHOTREXATE
     Indication: Product used for unknown indication
  2. METHOTREXATE [Suspect]
     Active Substance: METHOTREXATE
  3. FOLIC ACID [Suspect]
     Active Substance: FOLIC ACID
     Indication: Product used for unknown indication
  4. LEFLUNOMIDE [Suspect]
     Active Substance: LEFLUNOMIDE
     Indication: Product used for unknown indication
  5. LEFLUNOMIDE [Suspect]
     Active Substance: LEFLUNOMIDE
  6. LEFLUNOMIDE [Suspect]
     Active Substance: LEFLUNOMIDE
  7. LEFLUNOMIDE [Suspect]
     Active Substance: LEFLUNOMIDE
  8. SIMPONI [Suspect]
     Active Substance: GOLIMUMAB
     Indication: Product used for unknown indication
  9. SIMPONI [Suspect]
     Active Substance: GOLIMUMAB
  10. SIMPONI [Suspect]
     Active Substance: GOLIMUMAB
  11. SIMPONI [Suspect]
     Active Substance: GOLIMUMAB
  12. ALENDRONATE SODIUM\CHOLECALCIFEROL [Concomitant]
     Active Substance: ALENDRONATE SODIUM\CHOLECALCIFEROL
  13. ENBREL [Concomitant]
     Active Substance: ETANERCEPT
  14. ERGOCALCIFEROL [Concomitant]
     Active Substance: ERGOCALCIFEROL
  15. ESOMEPRAZOLE MAGNESIUM\NAPROXEN [Concomitant]
     Active Substance: ESOMEPRAZOLE MAGNESIUM\NAPROXEN
  16. ESOMEPRAZOLE MAGNESIUM\NAPROXEN [Concomitant]
     Active Substance: ESOMEPRAZOLE MAGNESIUM\NAPROXEN
  17. HUMIRA [Concomitant]
     Active Substance: ADALIMUMAB
  18. HUMIRA [Concomitant]
     Active Substance: ADALIMUMAB
  19. SULFASALAZINE [Concomitant]
     Active Substance: SULFASALAZINE
  20. SULFASALAZINE [Concomitant]
     Active Substance: SULFASALAZINE
  21. VITAMINS NOS [Concomitant]
     Active Substance: VITAMINS

REACTIONS (20)
  - Alopecia [Unknown]
  - Arthritis [Unknown]
  - Back pain [Unknown]
  - Blood cholesterol abnormal [Unknown]
  - Bone density decreased [Unknown]
  - Dizziness [Unknown]
  - Dyspnoea [Unknown]
  - Hepatic enzyme increased [Unknown]
  - Joint dislocation [Unknown]
  - Joint effusion [Unknown]
  - Ligament rupture [Unknown]
  - Nausea [Unknown]
  - Osteoarthritis [Unknown]
  - Osteoporosis [Unknown]
  - Plantar fasciitis [Unknown]
  - Psoriatic arthropathy [Unknown]
  - Red blood cell sedimentation rate increased [Unknown]
  - Rotator cuff syndrome [Unknown]
  - Tendonitis [Unknown]
  - Tuberculosis [Unknown]
